FAERS Safety Report 7626204-2 (Version None)
Quarter: 2011Q3

REPORT INFORMATION
  Report Type: 
  Country: None (occurrence: None)
  Receive Date: 20110721
  Receipt Date: 20110707
  Transmission Date: 20111222
  Serious: Yes (Life-Threatening, Hospitalization, Other)
  Sender: FDA-Public Use
  Company Number: PHHY2011DE63640

PATIENT
  Age: 47 Year
  Sex: Female

DRUGS (2)
  1. CLOZAPINE [Suspect]
     Dosage: 225
     Route: 001
     Dates: start: 20110101, end: 20110325
  2. LEVOTHYROXINE SODIUM [Concomitant]
     Dosage: 0.025 MG, UNK
     Dates: start: 20000101

REACTIONS (12)
  - VOMITING [None]
  - CONVULSION [None]
  - ENCOPRESIS [None]
  - BRAIN OEDEMA [None]
  - PNEUMONIA ASPIRATION [None]
  - BLOOD CREATINE PHOSPHOKINASE INCREASED [None]
  - SOMNOLENCE [None]
  - BLOOD ANTIDIURETIC HORMONE INCREASED [None]
  - RHABDOMYOLYSIS [None]
  - POLYDIPSIA [None]
  - HYPONATRAEMIA [None]
  - LOSS OF CONSCIOUSNESS [None]
